FAERS Safety Report 11468547 (Version 3)
Quarter: 2015Q4

REPORT INFORMATION
  Report Type: Spontaneous
  Country: JP (occurrence: JP)
  Receive Date: 20150908
  Receipt Date: 20151130
  Transmission Date: 20160304
  Serious: Yes (Hospitalization, Other)
  Sender: FDA-Public Use
  Company Number: JP-GLAXOSMITHKLINE-JP2015JPN125413

PATIENT
  Age: 43 Year
  Sex: Female
  Weight: 100 kg

DRUGS (31)
  1. AKINETON [Concomitant]
     Active Substance: BIPERIDEN HYDROCHLORIDE
     Dosage: 1 DF, TID
  2. LENDORMIN [Concomitant]
     Active Substance: BROTIZOLAM
     Dosage: 1 DF, QD
  3. CONIEL [Concomitant]
     Active Substance: BENIDIPINE HYDROCHLORIDE
     Dosage: 1 DF, BID
  4. RISPERDAL [Concomitant]
     Active Substance: RISPERIDONE
     Dosage: 2 DF, TID
  5. IMIGRAN [Suspect]
     Active Substance: SUMATRIPTAN SUCCINATE
     Indication: MIGRAINE
     Dosage: 20 G, PRN
     Route: 045
     Dates: start: 20140501, end: 20140516
  6. LINTON [Concomitant]
     Active Substance: HALOPERIDOL
     Dosage: 1 DF, TID
  7. BYETTA [Concomitant]
     Active Substance: EXENATIDE
     Dosage: UNK, BID
  8. METGLUCO [Concomitant]
     Active Substance: METFORMIN HYDROCHLORIDE
     Dosage: 2 DF, TID
  9. MIYA-BM [Concomitant]
     Active Substance: CLOSTRIDIUM BUTYRICUM SPORES STRAIN M-55
     Dosage: 1 DF, TID
  10. THIATON [Concomitant]
     Active Substance: TIQUIZIUM BROMIDE
     Dosage: UNK, PRN
  11. LEVOTOMIN [Concomitant]
     Active Substance: LEVOMEPROMAZINE
     Dosage: UNK UNK, QID
  12. EXCEGRAN [Concomitant]
     Active Substance: ZONISAMIDE
     Dosage: 2 DF, BID
  13. DORAL [Concomitant]
     Active Substance: QUAZEPAM
     Dosage: 1 DF, QD
  14. EPADEL [Concomitant]
     Active Substance: ICOSAPENT
     Dosage: 1 DF, TID
  15. TRANSAMIN [Concomitant]
     Active Substance: TRANEXAMIC ACID
     Dosage: 1 DF, TID
  16. TAKEPRON [Concomitant]
     Active Substance: LANSOPRAZOLE
     Dosage: 1 DF, QD
  17. MUCOSTA [Concomitant]
     Active Substance: REBAMIPIDE
     Dosage: 1 DF, BID
  18. SEPAZON [Concomitant]
     Active Substance: CLOXAZOLAM
     Dosage: 1 DF, TID
  19. SERENACE [Concomitant]
     Active Substance: HALOPERIDOL
     Dosage: 1 DF, TID
  20. LEXOTAN [Concomitant]
     Active Substance: BROMAZEPAM
     Dosage: 1 DF, PRN
  21. BEZATOL SR [Concomitant]
     Active Substance: BEZAFIBRATE
     Dosage: 1 DF, BID
  22. JUVELA N [Concomitant]
     Active Substance: TOCOPHERYL NICOTINATE, D-.ALPHA.
     Dosage: 1 DF, TID
  23. MYOCOR SPRAY [Concomitant]
     Dosage: UNK, PRN
  24. ALLEGRA TABLETS [Concomitant]
     Dosage: 1 DF, BID
  25. SIGMART [Concomitant]
     Active Substance: NICORANDIL
     Dosage: 1 DF, TID
  26. LEVOTOMIN [Concomitant]
     Active Substance: LEVOMEPROMAZINE
     Dosage: 1 DF, PRN
  27. SILECE [Concomitant]
     Active Substance: FLUNITRAZEPAM
     Dosage: 1 DF, QD
  28. UNISIA [Concomitant]
     Active Substance: AMLODIPINE BESYLATE\CANDESARTAN CILEXETIL
     Dosage: 1 DF, QD
  29. CONIEL [Concomitant]
     Active Substance: BENIDIPINE HYDROCHLORIDE
     Dosage: 8 G, UNK
  30. ITOROL [Concomitant]
     Active Substance: ISOSORBIDE MONONITRATE
     Dosage: 40 G, UNK
  31. DEPAKENE [Concomitant]
     Active Substance: VALPROIC ACID
     Dosage: 3 DF, BID

REACTIONS (3)
  - Angina pectoris [Recovered/Resolved]
  - Hyperventilation [Recovered/Resolved]
  - Contraindicated drug administered [Unknown]

NARRATIVE: CASE EVENT DATE: 20140516
